FAERS Safety Report 5899424-5 (Version None)
Quarter: 2008Q3

REPORT INFORMATION
  Report Type: 
  Country: None (occurrence: None)
  Receive Date: 20080924
  Receipt Date: 20080910
  Transmission Date: 20090109
  Serious: Yes (Hospitalization)
  Sender: FDA-Public Use
  Company Number: 2008BI004190

PATIENT
  Age: 67 Year
  Sex: Female
  Weight: 61.2356 kg

DRUGS (3)
  1. AVONEX [Suspect]
     Indication: MULTIPLE SCLEROSIS
     Dosage: 30 UG; QW; IM, 30 UG; QW; IM
     Route: 030
     Dates: start: 20021003, end: 20030101
  2. AVONEX [Suspect]
     Indication: MULTIPLE SCLEROSIS
     Dosage: 30 UG; QW; IM, 30 UG; QW; IM
     Route: 030
     Dates: start: 20030101
  3. ATENOLOL (CON.) [Concomitant]

REACTIONS (8)
  - HERPES ZOSTER OPHTHALMIC [None]
  - HYPERGLYCAEMIA [None]
  - IMMUNODEFICIENCY [None]
  - MULTIPLE SCLEROSIS RELAPSE [None]
  - SPEECH DISORDER [None]
  - SUBARACHNOID HAEMORRHAGE [None]
  - VASCULITIS [None]
  - WEIGHT DECREASED [None]
